FAERS Safety Report 19029746 (Version 1)
Quarter: 2021Q1

REPORT INFORMATION
  Report Type: Spontaneous
  Country: US (occurrence: US)
  Receive Date: 20210318
  Receipt Date: 20210318
  Transmission Date: 20210420
  Serious: Yes (Hospitalization)
  Sender: FDA-Public Use
  Company Number: None

PATIENT
  Age: 73 Year
  Sex: Male
  Weight: 82 kg

DRUGS (1)
  1. ADALIMUMAB [Suspect]
     Active Substance: ADALIMUMAB
     Indication: RHEUMATOID ARTHRITIS
     Route: 058
     Dates: start: 20180226, end: 20201102

REACTIONS (5)
  - Lupus-like syndrome [None]
  - Cellulitis [None]
  - Histone antibody positive [None]
  - Pleural effusion [None]
  - Antinuclear antibody increased [None]

NARRATIVE: CASE EVENT DATE: 20201214
